FAERS Safety Report 25821827 (Version 1)
Quarter: 2025Q3

REPORT INFORMATION
  Report Type: Spontaneous
  Country: US (occurrence: US)
  Receive Date: 20250919
  Receipt Date: 20250919
  Transmission Date: 20251021
  Serious: No
  Sender: JOHNSON AND JOHNSON
  Company Number: US-JNJFOC-20250915302

PATIENT

DRUGS (3)
  1. INVEGA TRINZA [Suspect]
     Active Substance: PALIPERIDONE PALMITATE
     Indication: Schizophrenia
     Route: 030
  2. INVEGA TRINZA [Suspect]
     Active Substance: PALIPERIDONE PALMITATE
  3. INVEGA TRINZA [Suspect]
     Active Substance: PALIPERIDONE PALMITATE

REACTIONS (8)
  - Abnormal behaviour [Unknown]
  - Injection site reaction [Unknown]
  - Pain in extremity [Unknown]
  - Hypersensitivity [Unknown]
  - Swelling [Unknown]
  - Skin disorder [Unknown]
  - Burning sensation [Unknown]
  - Erythema [Unknown]
